FAERS Safety Report 6177311-5 (Version None)
Quarter: 2009Q2

REPORT INFORMATION
  Report Type: 
  Country: None (occurrence: None)
  Receive Date: 20090430
  Receipt Date: 20090430
  Transmission Date: 20091009
  Serious: No
  Sender: FDA-Public Use
  Company Number: None

PATIENT

DRUGS (1)
  1. DIGOXIN [Suspect]

REACTIONS (16)
  - CARDIAC DISORDER [None]
  - DEHYDRATION [None]
  - DIVERTICULUM [None]
  - DIZZINESS [None]
  - GAIT DISTURBANCE [None]
  - GASTRIC DISORDER [None]
  - GASTROINTESTINAL DISORDER [None]
  - GASTROINTESTINAL ULCER [None]
  - HYPOTENSION [None]
  - MALAISE [None]
  - NAUSEA [None]
  - OESOPHAGEAL DISORDER [None]
  - POISONING [None]
  - PRODUCT QUALITY ISSUE [None]
  - VOMITING [None]
  - WEIGHT DECREASED [None]
